FAERS Safety Report 9801164 (Version 2)
Quarter: 2014Q2

REPORT INFORMATION
  Report Type: Spontaneous
  Country: US (occurrence: US)
  Receive Date: 20140107
  Receipt Date: 20140411
  Transmission Date: 20141212
  Serious: Yes (Hospitalization)
  Sender: FDA-Public Use
  Company Number: US-BAYER-2014-002357

PATIENT
  Age: 68 Year
  Sex: Male
  Weight: 90 kg

DRUGS (24)
  1. XOFIGO [Suspect]
     Indication: PROSTATE CANCER METASTATIC
     Dosage: DOSE 127.6 ?CI
     Route: 042
     Dates: start: 20131113, end: 20131113
  2. XOFIGO [Suspect]
     Indication: METASTASES TO BONE
     Dosage: DOSE 134.0 ?CI
     Route: 042
     Dates: start: 20131211, end: 20131211
  3. XGEVA [Concomitant]
     Dosage: DOSE 120 MG
     Route: 042
     Dates: start: 20130917, end: 20130917
  4. XGEVA [Concomitant]
     Dosage: DOSE 120 MG
     Route: 042
     Dates: start: 20131015, end: 20131015
  5. XGEVA [Concomitant]
     Dosage: DOSE 120 MG
     Route: 042
     Dates: start: 20131112, end: 20131112
  6. XGEVA [Concomitant]
     Dosage: DOSE 120 MG
     Route: 042
     Dates: start: 20131210, end: 20131210
  7. EXCEDRIN [ACETYLSALICYLIC ACID,CAFFEINE,PARACETAMOL] [Concomitant]
     Indication: MIGRAINE
  8. FIORICET [Concomitant]
     Indication: MIGRAINE
  9. DILAUDID [Concomitant]
     Indication: ARTHRALGIA
  10. ADVIL [Concomitant]
  11. MOTRIN [Concomitant]
  12. INDACIN [INDOMETACIN] [Concomitant]
     Indication: MIGRAINE
  13. PRINIVIL [Concomitant]
  14. ZESTRIL [Concomitant]
  15. PRINZIDE [Concomitant]
  16. ZESTORETIC [Concomitant]
  17. MEGACE [Concomitant]
  18. DUROGESIC [Concomitant]
     Indication: ARTHRALGIA
  19. ELIGARD [Concomitant]
  20. VIAGRA [Concomitant]
  21. HEPARIN [Concomitant]
     Indication: THROMBOSIS PROPHYLAXIS
  22. LOVENOX [Concomitant]
  23. OXYCONTIN [Concomitant]
  24. WELLBUTRIN XL [Concomitant]

REACTIONS (8)
  - Acetabulum fracture [None]
  - Pathological fracture [None]
  - Metastases to pelvis [None]
  - Nausea [None]
  - Decreased appetite [None]
  - Constipation [None]
  - Anaemia [None]
  - Groin pain [None]
